FAERS Safety Report 6542228-0 (Version None)
Quarter: 2010Q1

REPORT INFORMATION
  Report Type: 
  Country: None (occurrence: None)
  Receive Date: 20100119
  Receipt Date: 20100113
  Transmission Date: 20100710
  Serious: Yes (Other)
  Sender: FDA-Public Use
  Company Number: B0613445A

PATIENT
  Sex: Male
  Weight: 21 kg

DRUGS (5)
  1. RELENZA [Suspect]
     Indication: INFLUENZA
     Dosage: 10MG TWICE PER DAY
     Route: 055
     Dates: start: 20091205, end: 20091207
  2. MUCOSOLVAN SYR [Concomitant]
     Route: 048
  3. ASVERIN [Concomitant]
     Indication: UPPER RESPIRATORY TRACT INFLAMMATION
     Dosage: 40MG PER DAY
     Route: 048
     Dates: start: 20091205
  4. CYSTEAMINE [Concomitant]
     Indication: UPPER RESPIRATORY TRACT INFLAMMATION
     Dosage: 500MG PER DAY
     Route: 048
     Dates: start: 20091205
  5. CLARITHROMYCIN [Concomitant]
     Indication: UPPER RESPIRATORY TRACT INFLAMMATION
     Route: 048
     Dates: start: 20091205

REACTIONS (3)
  - ABNORMAL BEHAVIOUR [None]
  - MALAISE [None]
  - SOMNAMBULISM [None]
